FAERS Safety Report 23937079 (Version 3)
Quarter: 2024Q2

REPORT INFORMATION
  Report Type: Spontaneous
  Country: ES (occurrence: None)
  Receive Date: 20240604
  Receipt Date: 20240628
  Transmission Date: 20240715
  Serious: Yes (Other)
  Sender: FDA-Public Use
  Company Number: 2024A126392

PATIENT
  Age: 50 Year
  Sex: Female

DRUGS (10)
  1. PULMICORT TURBUHALER [Suspect]
     Active Substance: BUDESONIDE
     Indication: Asthma
     Dosage: INHALATION POWDER FOR INHALATION 1 INHALER 100 DOSE
     Route: 055
  2. TAIOMA PLUS [Concomitant]
     Dosage: 10/5
  3. TAIOMA PLUS [Concomitant]
     Dosage: 2.5/5
  4. VALPROATE SODIUM [Concomitant]
     Active Substance: VALPROATE SODIUM
  5. DEXKETOPROFEN TROMETAMOL [Concomitant]
     Active Substance: DEXKETOPROFEN TROMETAMOL
  6. NOLOTIL [Concomitant]
  7. OMEPRAZOLE [Concomitant]
     Active Substance: OMEPRAZOLE
  8. PROPIVERINE HYDROCHLORIDE [Concomitant]
     Active Substance: PROPIVERINE HYDROCHLORIDE
  9. DULOXETINE [Concomitant]
     Active Substance: DULOXETINE
  10. AZELASTINE HYDROCHLORIDE [Concomitant]
     Active Substance: AZELASTINE HYDROCHLORIDE

REACTIONS (4)
  - Asphyxia [Unknown]
  - Drug ineffective [Unknown]
  - Off label use [Unknown]
  - Device delivery system issue [Unknown]
